FAERS Safety Report 9280680 (Version 2)
Quarter: 2013Q2

REPORT INFORMATION
  Report Type: Spontaneous
  Country: US (occurrence: US)
  Receive Date: 20130509
  Receipt Date: 20130529
  Transmission Date: 20140414
  Serious: No
  Sender: FDA-Public Use
  Company Number: US-PFIZER INC-2013143124

PATIENT
  Age: 41 Year
  Sex: Male
  Weight: 77.1 kg

DRUGS (1)
  1. ZOLOFT [Suspect]
     Indication: ANXIETY
     Dosage: 100 MG, 1X/DAY
     Dates: start: 2001

REACTIONS (2)
  - Drug dose omission [Unknown]
  - Dizziness [Unknown]
